FAERS Safety Report 10149673 (Version 1)
Quarter: 2014Q2

REPORT INFORMATION
  Report Type: Spontaneous
  Country: CA (occurrence: CA)
  Receive Date: 20140502
  Receipt Date: 20140502
  Transmission Date: 20141212
  Serious: Yes (Other)
  Sender: FDA-Public Use
  Company Number: CA-ASTRAZENECA-2014SE28567

PATIENT
  Age: 43 Year
  Sex: Female

DRUGS (6)
  1. ZOLADEX [Suspect]
     Route: 058
  2. TAMOXIFEN CITRATE [Suspect]
     Route: 048
  3. XELODA [Suspect]
     Route: 065
  4. LETROZOLE [Suspect]
     Route: 048
  5. TAXOTERE [Suspect]
     Route: 042
  6. VINORELBINE TARTARATE [Suspect]
     Route: 042

REACTIONS (2)
  - Breast cancer female [Unknown]
  - Malignant neoplasm progression [Unknown]
